FAERS Safety Report 11736345 (Version 2)
Quarter: 2015Q4

REPORT INFORMATION
  Report Type: Spontaneous
  Country: CA (occurrence: CA)
  Receive Date: 20151113
  Receipt Date: 20151201
  Transmission Date: 20160304
  Serious: Yes (Other)
  Sender: FDA-Public Use
  Company Number: CA-SA-2015SA174446

PATIENT
  Age: 14 Year
  Sex: Female

DRUGS (1)
  1. ALLERJECT [Suspect]
     Active Substance: EPINEPHRINE
     Dosage: STRENGTH: 0.3 MG EN?FORM: MEDICAL SUPPLIES
     Route: 065

REACTIONS (2)
  - Drug ineffective [Unknown]
  - Choking [Unknown]

NARRATIVE: CASE EVENT DATE: 20151029
